FAERS Safety Report 22217216 (Version 1)
Quarter: 2023Q2

REPORT INFORMATION
  Report Type: Spontaneous
  Country: KR (occurrence: KR)
  Receive Date: 20230417
  Receipt Date: 20230417
  Transmission Date: 20230722
  Serious: Yes (Other)
  Sender: FDA-Public Use
  Company Number: KR-ASTELLAS-2023US011734

PATIENT
  Age: 78 Year
  Sex: Male

DRUGS (1)
  1. MIRABEGRON [Suspect]
     Active Substance: MIRABEGRON
     Indication: Micturition urgency
     Dosage: 50 MG, ONCE DAILY (ONE TABLET ONCE DAILY IN THE MORNING)
     Route: 065

REACTIONS (6)
  - Cataract [Unknown]
  - Constipation [Unknown]
  - Fracture [Unknown]
  - Gait disturbance [Unknown]
  - Urinary hesitation [Unknown]
  - Drug ineffective for unapproved indication [Unknown]
